FAERS Safety Report 14605292 (Version 1)
Quarter: 2018Q1

REPORT INFORMATION
  Report Type: Spontaneous
  Country: US (occurrence: US)
  Receive Date: 20180306
  Receipt Date: 20180306
  Transmission Date: 20180509
  Serious: Yes (Other)
  Sender: FDA-Public Use
  Company Number: US-PFIZER INC-2017318627

PATIENT
  Age: 58 Year
  Sex: Female
  Weight: 57.6 kg

DRUGS (2)
  1. XELJANZ XR [Suspect]
     Active Substance: TOFACITINIB CITRATE
     Indication: PSORIATIC ARTHROPATHY
  2. XELJANZ XR [Suspect]
     Active Substance: TOFACITINIB CITRATE
     Indication: PSORIASIS
     Dosage: 11 MG, 1X/DAY
     Route: 048
     Dates: start: 201706

REACTIONS (5)
  - Product use in unapproved indication [Unknown]
  - Eye discharge [Unknown]
  - Retinal oedema [Unknown]
  - Visual impairment [Unknown]
  - Pain in extremity [Unknown]

NARRATIVE: CASE EVENT DATE: 201706
